FAERS Safety Report 10239980 (Version 1)
Quarter: 2014Q2

REPORT INFORMATION
  Report Type: Spontaneous
  Country: DE (occurrence: DE)
  Receive Date: 20140616
  Receipt Date: 20140616
  Transmission Date: 20141212
  Serious: Yes (Hospitalization, Other)
  Sender: FDA-Public Use
  Company Number: DE-MYLANLABS-2014S1013185

PATIENT
  Age: 56 Year
  Sex: Male

DRUGS (7)
  1. MIRTAZAPIN [Suspect]
     Route: 048
     Dates: start: 20120702, end: 20130925
  2. CITALOPRAM [Concomitant]
     Route: 048
     Dates: start: 20120702
  3. RAMIPRIL [Concomitant]
     Route: 048
     Dates: start: 201212
  4. TORASEMID [Concomitant]
     Route: 048
     Dates: start: 201205
  5. AMLODIPIN /00972401/ [Concomitant]
     Route: 048
     Dates: start: 201301
  6. ASS [Concomitant]
     Dosage: SEIT LANGEREM
     Route: 048
  7. ATORVASTATIN [Concomitant]
     Route: 048
     Dates: start: 201207

REACTIONS (1)
  - Nightmare [Recovered/Resolved]
